FAERS Safety Report 9539069 (Version 2)
Quarter: 2014Q1

REPORT INFORMATION
  Report Type: Spontaneous
  Country: US (occurrence: US)
  Receive Date: 20130920
  Receipt Date: 20140226
  Transmission Date: 20141002
  Serious: No
  Sender: FDA-Public Use
  Company Number: US-PFIZER INC-2013271508

PATIENT
  Age: 50 Year
  Sex: Female
  Weight: 73.92 kg

DRUGS (7)
  1. LYRICA [Suspect]
     Indication: FIBROMYALGIA
     Dosage: 200 MG, 1X/DAY
     Route: 048
     Dates: start: 2013
  2. LYRICA [Suspect]
     Dosage: 100 MG, 1X/DAY
     Route: 048
  3. TRAMADOL [Concomitant]
     Indication: PAIN
     Dosage: 50 MG, UNK
  4. TRAMADOL [Concomitant]
     Dosage: UNK, AS NEEDED
  5. NORTRIPTYLINE [Concomitant]
     Indication: MIGRAINE
     Dosage: 10 MG, UNK
  6. NORTRIPTYLINE [Concomitant]
     Indication: ANXIETY
  7. NORTRIPTYLINE [Concomitant]
     Indication: NEURALGIA

REACTIONS (4)
  - Blood pressure decreased [Not Recovered/Not Resolved]
  - Dizziness [Unknown]
  - Feeling cold [Not Recovered/Not Resolved]
  - Somnolence [Unknown]
